FAERS Safety Report 14251461 (Version 6)
Quarter: 2018Q4

REPORT INFORMATION
  Report Type: Spontaneous
  Country: US (occurrence: US)
  Receive Date: 20171205
  Receipt Date: 20181203
  Transmission Date: 20190204
  Serious: Yes (Death, Hospitalization)
  Sender: FDA-Public Use
  Company Number: US-ACTELION-A-NJ2017-163556

PATIENT
  Age: 45 Year
  Sex: Female
  Weight: 146.49 kg

DRUGS (3)
  1. OPSUMIT [Suspect]
     Active Substance: MACITENTAN
     Indication: PULMONARY ARTERIAL HYPERTENSION
     Dosage: 10 MG, QD
     Route: 048
     Dates: start: 20151122, end: 20171123
  2. REVATIO [Concomitant]
     Active Substance: SILDENAFIL CITRATE
  3. REMODULIN [Concomitant]
     Active Substance: TREPROSTINIL
     Route: 058

REACTIONS (16)
  - Brain death [Fatal]
  - Seizure [Unknown]
  - Blood creatinine increased [Unknown]
  - Musculoskeletal discomfort [Unknown]
  - Arthralgia [Not Recovered/Not Resolved]
  - Peripheral swelling [Unknown]
  - Carcinoid tumour [Unknown]
  - Cardiac arrest [Fatal]
  - Muscle spasms [Recovered/Resolved]
  - Epistaxis [Unknown]
  - Apnoea [Unknown]
  - Sepsis [Fatal]
  - White blood cell count increased [Fatal]
  - Unresponsive to stimuli [Fatal]
  - Ventricular tachycardia [Unknown]
  - International normalised ratio increased [Unknown]

NARRATIVE: CASE EVENT DATE: 20160223
